FAERS Safety Report 23768948 (Version 2)
Quarter: 2024Q2

REPORT INFORMATION
  Report Type: Report from Study
  Country: JP (occurrence: JP)
  Receive Date: 20240422
  Receipt Date: 20240518
  Transmission Date: 20240715
  Serious: Yes (Death)
  Sender: FDA-Public Use
  Company Number: JP-teijin-202401267_XEO_P_1

PATIENT
  Age: 93 Year
  Sex: Male
  Weight: 49.5 kg

DRUGS (7)
  1. XEOMIN [Suspect]
     Active Substance: INCOBOTULINUMTOXINA
     Indication: Muscle spasticity
     Route: 030
     Dates: start: 20221130, end: 20221130
  2. XEOMIN [Suspect]
     Active Substance: INCOBOTULINUMTOXINA
     Route: 030
     Dates: start: 20220511, end: 20220511
  3. XEOMIN [Suspect]
     Active Substance: INCOBOTULINUMTOXINA
     Route: 030
     Dates: start: 20220831, end: 20220831
  4. RIVAROXABAN [Concomitant]
     Active Substance: RIVAROXABAN
     Indication: Cerebral infarction
     Dosage: 10 MG
     Route: 048
     Dates: end: 20221216
  5. BISOPROLOL FUMARATE [Concomitant]
     Active Substance: BISOPROLOL FUMARATE
     Indication: Cerebral infarction
     Dosage: 1.25 MG
     Route: 048
     Dates: end: 20221216
  6. FUROSEMIDE [Concomitant]
     Active Substance: FUROSEMIDE
     Indication: Cerebral infarction
     Dosage: 10 MG
     Route: 048
     Dates: end: 20221215
  7. ALACEPRIL [Concomitant]
     Active Substance: ALACEPRIL
     Indication: Cerebral infarction
     Dosage: 12.5 MG
     Route: 048
     Dates: end: 20221216

REACTIONS (1)
  - Death [Fatal]

NARRATIVE: CASE EVENT DATE: 20221217
